FAERS Safety Report 6674726-3 (Version None)
Quarter: 2010Q2

REPORT INFORMATION
  Report Type: 
  Country: None (occurrence: None)
  Receive Date: 20100409
  Receipt Date: 20091126
  Transmission Date: 20101027
  Serious: Yes (Other)
  Sender: FDA-Public Use
  Company Number: FR-PFIZER INC-2010041208

PATIENT
  Age: 44 Year
  Sex: Female

DRUGS (11)
  1. ATARAX [Suspect]
     Indication: DEPRESSION
     Dosage: 150 MG, 1X/DAY
     Route: 048
     Dates: end: 20091015
  2. VENLAFAXINE [Suspect]
     Indication: DEPRESSION
     Dosage: 75 MG, 2X/DAY
     Route: 048
     Dates: start: 20091021, end: 20091021
  3. ESCITALOPRAM OXALATE [Suspect]
     Indication: DEPRESSION
     Dosage: 10 MG, 1X/DAY
     Route: 048
     Dates: end: 20091015
  4. LORMETAZEPAM [Concomitant]
  5. GINKOR FORT [Concomitant]
  6. XANAX [Concomitant]
     Dosage: UNK
     Dates: start: 20090825
  7. TEGRETOL [Concomitant]
     Dosage: UNK
     Dates: start: 20090930
  8. ZYPREXA [Concomitant]
     Dosage: UNK
     Dates: start: 20090907, end: 20090921
  9. TRIHEXYPHENIDYL [Concomitant]
     Dosage: UNK
     Dates: start: 20090915, end: 20090921
  10. RISPERDAL [Concomitant]
  11. VALPROATE SODIUM [Concomitant]

REACTIONS (3)
  - DYSPNOEA [None]
  - ERYTHEMA [None]
  - PRURITUS [None]
